FAERS Safety Report 5290378-1 (Version None)
Quarter: 2007Q2

REPORT INFORMATION
  Report Type: 
  Country: None (occurrence: None)
  Receive Date: 20070402
  Receipt Date: 20070323
  Transmission Date: 20071010
  Serious: Yes (Death)
  Sender: FDA-Public Use
  Company Number: E2020-01097-SPO-JP

PATIENT
  Age: 86 Year
  Sex: Female

DRUGS (5)
  1. ARICEPT [Suspect]
     Indication: DEMENTIA ALZHEIMER'S TYPE
     Dosage: 3 MG, 1 IN 1 D, ORAL
     Route: 048
     Dates: start: 20070224
  2. FOSAMAC (ALENDRONATE SODIUM) [Concomitant]
  3. ALFAROL (ALFACALCIDOL) [Concomitant]
  4. FAMOTIDINE [Concomitant]
  5. INDOMETHACIN [Concomitant]

REACTIONS (2)
  - FALL [None]
  - MYOCARDIAL INFARCTION [None]
